FAERS Safety Report 17406473 (Version 1)
Quarter: 2020Q1

REPORT INFORMATION
  Report Type: Spontaneous
  Country: US (occurrence: US)
  Receive Date: 20200212
  Receipt Date: 20200212
  Transmission Date: 20200409
  Serious: No
  Sender: FDA-Public Use
  Company Number: US-ALLERGAN-1922481US

PATIENT
  Age: 33 Year
  Sex: Male

DRUGS (3)
  1. VIIBRYD [Suspect]
     Active Substance: VILAZODONE HYDROCHLORIDE
     Indication: IMPATIENCE
     Dosage: 20 IN THE AM AND 20 MG IN THE EVENING
     Dates: end: 201904
  2. VIIBRYD [Suspect]
     Active Substance: VILAZODONE HYDROCHLORIDE
     Indication: ANGER
     Dosage: 40 MG
  3. VIIBRYD [Suspect]
     Active Substance: VILAZODONE HYDROCHLORIDE
     Indication: DEPRESSION
     Dosage: 20 MG
     Dates: start: 201902

REACTIONS (11)
  - Dyspnoea [Recovered/Resolved]
  - Nightmare [Recovered/Resolved]
  - Anxiety [Recovered/Resolved]
  - Sleep paralysis [Recovered/Resolved]
  - Paraesthesia [Recovered/Resolved]
  - Panic attack [Recovered/Resolved]
  - Anorgasmia [Recovered/Resolved]
  - Intentional dose omission [Unknown]
  - Crying [Recovered/Resolved]
  - Tinnitus [Recovered/Resolved]
  - Off label use [Unknown]
